FAERS Safety Report 14721252 (Version 1)
Quarter: 2018Q1

REPORT INFORMATION
  Report Type: Spontaneous
  Country: US (occurrence: US)
  Receive Date: 20180330
  Receipt Date: 20180330
  Transmission Date: 20180509
  Serious: Yes (Hospitalization)
  Sender: FDA-Public Use
  Company Number: None

PATIENT
  Age: 15 Year
  Sex: Male
  Weight: 158 kg

DRUGS (6)
  1. ONCASPAR [Suspect]
     Active Substance: PEGASPARGASE
     Dates: end: 20180121
  2. METHOTREXATE. [Suspect]
     Active Substance: METHOTREXATE
     Dates: end: 20180215
  3. DAUNORUBICIN [Suspect]
     Active Substance: DAUNORUBICIN
     Dates: end: 20180208
  4. CYTARABINE. [Suspect]
     Active Substance: CYTARABINE
     Dates: end: 20180208
  5. PREDNISONE. [Suspect]
     Active Substance: PREDNISONE
     Dates: end: 20180214
  6. VINCRISTINE SULFATE. [Suspect]
     Active Substance: VINCRISTINE SULFATE
     Dates: end: 20180208

REACTIONS (6)
  - Mental status changes [None]
  - Pulmonary haemorrhage [None]
  - Acute respiratory failure [None]
  - Blood culture positive [None]
  - Hallucination [None]
  - Coronavirus test positive [None]

NARRATIVE: CASE EVENT DATE: 20180218
